FAERS Safety Report 16942526 (Version 1)
Quarter: 2019Q4

REPORT INFORMATION
  Report Type: Spontaneous
  Country: CA (occurrence: CA)
  Receive Date: 20191021
  Receipt Date: 20191021
  Transmission Date: 20200122
  Serious: Yes (Disabling, Other)
  Sender: FDA-Public Use
  Company Number: CA-TEVA-2019-CA-1124642

PATIENT
  Age: 15 Year
  Sex: Female
  Weight: 48 kg

DRUGS (13)
  1. ADCETRIS [Suspect]
     Active Substance: BRENTUXIMAB VEDOTIN
     Indication: HODGKIN^S DISEASE
     Route: 042
  2. ETOPOSIDE. [Concomitant]
     Active Substance: ETOPOSIDE
  3. VINCRISTINE SULFATE. [Suspect]
     Active Substance: VINCRISTINE SULFATE
     Indication: HODGKIN^S DISEASE
     Route: 042
  4. CYCLOPHOSPHAMIDE. [Concomitant]
     Active Substance: CYCLOPHOSPHAMIDE
  5. PREDNISONE. [Concomitant]
     Active Substance: PREDNISONE
  6. DOXORUBICIN LIPOSOMAL [Concomitant]
     Active Substance: DOXORUBICIN
  7. METHYLPREDNISOLONE. [Concomitant]
     Active Substance: METHYLPREDNISOLONE
  8. BLEOMYCIN SULPHATE FOR INJECTION USP [Concomitant]
     Active Substance: BLEOMYCIN SULFATE
  9. BUSULFAN. [Concomitant]
     Active Substance: BUSULFAN
  10. GEMCITABINE. [Concomitant]
     Active Substance: GEMCITABINE
  11. MELPHALAN. [Concomitant]
     Active Substance: MELPHALAN
  12. VINORELBINE TARTRATE FOR INJECTION [Concomitant]
     Active Substance: VINORELBINE TARTRATE
  13. DEXAMETHASONE. [Concomitant]
     Active Substance: DEXAMETHASONE

REACTIONS (9)
  - Dysgraphia [Recovered/Resolved]
  - Hypoaesthesia [Recovered/Resolved]
  - Mobility decreased [Recovered/Resolved]
  - Paraesthesia [Recovered/Resolved]
  - Neurotoxicity [Recovered/Resolved]
  - Tremor [Recovered/Resolved]
  - Motor dysfunction [Recovered/Resolved]
  - Asthenia [Recovered/Resolved]
  - Neuropathy peripheral [Recovered/Resolved]
